FAERS Safety Report 8766076 (Version 2)
Quarter: 2013Q4

REPORT INFORMATION
  Report Type: Spontaneous
  Country: DE (occurrence: DE)
  Receive Date: 20120904
  Receipt Date: 20131106
  Transmission Date: 20140711
  Serious: Yes (Life-Threatening, Hospitalization)
  Sender: FDA-Public Use
  Company Number: DE-009507513-1207DEU005581

PATIENT
  Age: 46 Year
  Sex: Female
  Weight: 100 kg

DRUGS (4)
  1. TEMODAL [Suspect]
     Indication: GLIOBLASTOMA
     Dosage: 170 MG, QD
     Route: 048
     Dates: start: 20120522, end: 20120626
  2. FORTECORTIN [Concomitant]
     Indication: OEDEMA
     Dosage: 1 MG, QD
  3. PANTOZOL [Concomitant]
     Indication: GASTRITIS PROPHYLAXIS
     Dosage: 20 DF, QD
  4. COTRIM FORTE [Concomitant]
     Indication: ANTIFUNGAL PROPHYLAXIS
     Dosage: 960 MG, QD
     Route: 048

REACTIONS (3)
  - Thrombocytopenia [Recovered/Resolved]
  - Leukopenia [Recovered/Resolved]
  - Haemorrhage [Recovered/Resolved]
